FAERS Safety Report 5174538-6 (Version None)
Quarter: 2006Q4

REPORT INFORMATION
  Report Type: 
  Country: None (occurrence: None)
  Receive Date: 20061214
  Receipt Date: 20060509
  Transmission Date: 20070319
  Serious: No
  Sender: FDA-Public Use
  Company Number: US-AMGEN-KDL179032

PATIENT
  Sex: Female

DRUGS (6)
  1. ENBREL [Suspect]
     Indication: DRUG USE FOR UNKNOWN INDICATION
     Route: 058
     Dates: start: 20040901, end: 20060301
  2. METFORMIN [Concomitant]
     Route: 065
  3. MECLIZINE [Concomitant]
     Route: 065
  4. ZYRTEC [Concomitant]
     Route: 065
  5. SIMVASTATIN [Concomitant]
     Route: 065
  6. WELLBUTRIN [Concomitant]
     Route: 065

REACTIONS (1)
  - MULTIPLE SCLEROSIS [None]
